FAERS Safety Report 11131400 (Version 7)
Quarter: 2018Q3

REPORT INFORMATION
  Report Type: Report from Study
  Country: US (occurrence: US)
  Receive Date: 20150522
  Receipt Date: 20180822
  Transmission Date: 20181010
  Serious: Yes (Hospitalization, Other)
  Sender: FDA-Public Use
  Company Number: US-SA-2015SA068684

PATIENT
  Age: 45 Year
  Sex: Female

DRUGS (2)
  1. LEMTRADA [Suspect]
     Active Substance: ALEMTUZUMAB
     Indication: MULTIPLE SCLEROSIS
     Dosage: 12 MG,QD
     Route: 041
     Dates: start: 20150427, end: 20150501
  2. LEMTRADA [Suspect]
     Active Substance: ALEMTUZUMAB
     Dosage: 12 MG,QD
     Route: 041
     Dates: start: 20160516, end: 20160518

REACTIONS (50)
  - Autoimmune disorder [Unknown]
  - Rosacea [Not Recovered/Not Resolved]
  - Nausea [Recovered/Resolved]
  - Stress [Not Recovered/Not Resolved]
  - Impaired work ability [Not Recovered/Not Resolved]
  - Mobility decreased [Recovered/Resolved]
  - Gait disturbance [Not Recovered/Not Resolved]
  - Abdominal pain upper [Not Recovered/Not Resolved]
  - Herpes virus infection [Unknown]
  - Vomiting [Recovered/Resolved]
  - Urine analysis abnormal [Not Recovered/Not Resolved]
  - Feeling abnormal [Unknown]
  - Clostridium difficile infection [Recovered/Resolved]
  - Feeling abnormal [Recovered/Resolved]
  - Pain in extremity [Not Recovered/Not Resolved]
  - Back pain [Not Recovered/Not Resolved]
  - Infectious colitis [Not Recovered/Not Resolved]
  - Weight decreased [Recovered/Resolved]
  - Urine abnormality [Not Recovered/Not Resolved]
  - Blood sodium decreased [Not Recovered/Not Resolved]
  - Hypoacusis [Not Recovered/Not Resolved]
  - Ovarian cyst [Not Recovered/Not Resolved]
  - Gastritis [Not Recovered/Not Resolved]
  - Feeling hot [Not Recovered/Not Resolved]
  - Vision blurred [Recovering/Resolving]
  - Basedow^s disease [Not Recovered/Not Resolved]
  - Temperature intolerance [Not Recovered/Not Resolved]
  - Pain [Unknown]
  - Dizziness [Not Recovered/Not Resolved]
  - Thyroid function test abnormal [Unknown]
  - Flushing [Not Recovered/Not Resolved]
  - Malaise [Recovered/Resolved]
  - Impaired healing [Not Recovered/Not Resolved]
  - Fatigue [Not Recovered/Not Resolved]
  - Nausea [Not Recovered/Not Resolved]
  - Visual impairment [Not Recovered/Not Resolved]
  - Alopecia [Unknown]
  - Rash generalised [Recovered/Resolved]
  - Chromaturia [Not Recovered/Not Resolved]
  - Swelling [Recovered/Resolved]
  - Fractured coccyx [Not Recovered/Not Resolved]
  - Muscle spasms [Not Recovered/Not Resolved]
  - Abdominal pain upper [Not Recovered/Not Resolved]
  - Unevaluable event [Unknown]
  - Dry skin [Not Recovered/Not Resolved]
  - Blood test abnormal [Not Recovered/Not Resolved]
  - White blood cell count decreased [Not Recovered/Not Resolved]
  - Abdominal pain [Recovered/Resolved]
  - Diarrhoea [Not Recovered/Not Resolved]
  - Multiple sclerosis relapse [Not Recovered/Not Resolved]

NARRATIVE: CASE EVENT DATE: 2015
